FAERS Safety Report 4620993-7 (Version None)
Quarter: 2005Q2

REPORT INFORMATION
  Report Type: 
  Country: None (occurrence: None)
  Receive Date: 20050317
  Receipt Date: 20041214
  Transmission Date: 20051028
  Serious: Yes (Other)
  Sender: FDA-Public Use
  Company Number: 2004103018

PATIENT
  Sex: Female

DRUGS (2)
  1. VFEND [Suspect]
     Indication: OSTEOMYELITIS
  2. DIFLUCAN [Suspect]
     Indication: OSTEOMYELITIS

REACTIONS (3)
  - COCCIDIOIDOMYCOSIS [None]
  - LIVER FUNCTION TEST ABNORMAL [None]
  - RASH [None]
